FAERS Safety Report 7120235-7 (Version None)
Quarter: 2010Q4

REPORT INFORMATION
  Report Type: 
  Country: None (occurrence: None)
  Receive Date: 20101123
  Receipt Date: 20101102
  Transmission Date: 20110411
  Serious: Yes (Other)
  Sender: FDA-Public Use
  Company Number: US-AMGEN-USASP2010001334

PATIENT

DRUGS (23)
  1. ENBREL [Suspect]
     Indication: RHEUMATOID ARTHRITIS
     Dosage: 50 MG, QWK
     Route: 058
     Dates: start: 20100801
  2. REMERON [Concomitant]
     Dosage: UNK
  3. KLONOPIN [Concomitant]
     Dosage: UNK
  4. VALIUM [Concomitant]
     Dosage: UNK
  5. LYRICA [Concomitant]
     Dosage: UNK
  6. PLAQUENIL                          /00072601/ [Concomitant]
     Dosage: 200 MG, BID
  7. METHOTREXATE [Concomitant]
     Dosage: |2.5 MG, Q6WK
     Route: 048
  8. FLEXERIL [Concomitant]
     Dosage: UNK
  9. NEXIUM [Concomitant]
     Dosage: UNK
  10. CRESTOR [Concomitant]
     Dosage: UNK
  11. FEXOFENADINE HCL [Concomitant]
     Dosage: UNK
  12. XOPENEX [Concomitant]
     Dosage: UNK
  13. ADVAIR DISKUS 100/50 [Concomitant]
     Dosage: UNK
  14. IMITREX [Concomitant]
     Dosage: UNK
  15. PERCOCET [Concomitant]
     Dosage: UNK
  16. PHENERGAN HCL [Concomitant]
     Dosage: UNK
  17. FOLIC ACID [Concomitant]
     Dosage: 4 MG, QD
     Route: 048
  18. FERROUS SULFATE [Concomitant]
     Dosage: UNK
  19. VITAMIN B-12 [Concomitant]
     Dosage: UNK
     Route: 030
  20. AGGRENOX [Concomitant]
     Dosage: UNK
  21. POTASSIUM CHLORIDE [Concomitant]
  22. LASIX [Concomitant]
  23. SULINDAC [Concomitant]
     Dosage: UNK

REACTIONS (11)
  - ABDOMINAL PAIN UPPER [None]
  - C-REACTIVE PROTEIN INCREASED [None]
  - DRUG INEFFECTIVE [None]
  - HYPERGLYCAEMIA [None]
  - HYPOAESTHESIA [None]
  - IRON DEFICIENCY ANAEMIA [None]
  - MACULAR DEGENERATION [None]
  - NAUSEA [None]
  - OEDEMA PERIPHERAL [None]
  - RED BLOOD CELL SEDIMENTATION RATE INCREASED [None]
  - VULVOVAGINAL MYCOTIC INFECTION [None]
